FAERS Safety Report 7114713-4 (Version None)
Quarter: 2010Q4

REPORT INFORMATION
  Report Type: 
  Country: None (occurrence: None)
  Receive Date: 20101122
  Receipt Date: 20101116
  Transmission Date: 20110411
  Serious: No
  Sender: FDA-Public Use
  Company Number: US-BIOGENIDEC-2010BI040105

PATIENT
  Sex: Female

DRUGS (4)
  1. AVONEX [Suspect]
     Indication: MULTIPLE SCLEROSIS
     Route: 030
     Dates: end: 20101101
  2. FENTANYL [Concomitant]
     Indication: PAIN
     Route: 062
  3. FENTANYL [Concomitant]
     Route: 062
  4. ROXICODONE [Concomitant]
     Indication: PAIN
     Route: 048

REACTIONS (5)
  - CENTRAL NERVOUS SYSTEM LESION [None]
  - GAIT DISTURBANCE [None]
  - HYPERHIDROSIS [None]
  - PAIN [None]
  - STRESS [None]
